FAERS Safety Report 8392730-4 (Version None)
Quarter: 2012Q2

REPORT INFORMATION
  Report Type: 
  Country: None (occurrence: None)
  Receive Date: 20120529
  Receipt Date: 20120524
  Transmission Date: 20120825
  Serious: Yes (Other)
  Sender: FDA-Public Use
  Company Number: CA-ABBOTT-10P-028-0639925-00

PATIENT
  Age: 61 Year
  Sex: Female

DRUGS (12)
  1. CHOP (CYCLOPHOSPHAMIDE, HYDROXYDAUNORUBICIN, VINCRISTINE, PREDNISONE) [Concomitant]
     Indication: NON-HODGKIN'S LYMPHOMA
     Dates: start: 20071101, end: 20080101
  2. CALCIUM [Concomitant]
     Indication: PRODUCT USED FOR UNKNOWN INDICATION
  3. CALCIUM [Concomitant]
  4. RITUXAN [Concomitant]
     Indication: PRODUCT USED FOR UNKNOWN INDICATION
  5. CYCLOPHOSPHAMIDE [Concomitant]
     Indication: CHEMOTHERAPY
  6. VITAMIN D [Concomitant]
     Indication: PRODUCT USED FOR UNKNOWN INDICATION
  7. PREDNISONE [Concomitant]
     Indication: CHEMOTHERAPY
  8. RITUXAN [Suspect]
     Indication: NON-HODGKIN'S LYMPHOMA
     Route: 042
     Dates: start: 20071101, end: 20091101
  9. BIAXIN [Suspect]
     Indication: PRODUCT USED FOR UNKNOWN INDICATION
     Dates: start: 20091112
  10. AMOXICILLIN AND CLAVULANATE POTASSIUM [Concomitant]
     Indication: PRODUCT USED FOR UNKNOWN INDICATION
     Dates: start: 20090101
  11. DOXORUBICIN HYDROCHLORIDE [Concomitant]
     Indication: CHEMOTHERAPY
  12. VINCRISTINE SULFATE [Concomitant]
     Indication: PRODUCT USED FOR UNKNOWN INDICATION

REACTIONS (3)
  - DEAFNESS [None]
  - OEDEMA PERIPHERAL [None]
  - SUDDEN HEARING LOSS [None]
